FAERS Safety Report 19599401 (Version 3)
Quarter: 2021Q3

REPORT INFORMATION
  Report Type: Report from Study
  Country: IT (occurrence: IT)
  Receive Date: 20210722
  Receipt Date: 20210825
  Transmission Date: 20211014
  Serious: Yes (Hospitalization)
  Sender: FDA-Public Use
  Company Number: IT-TAKEDA-2021TUS045307

PATIENT
  Age: 29 Year
  Sex: Male

DRUGS (4)
  1. IDURSULFASE [Suspect]
     Active Substance: IDURSULFASE
     Dosage: 0.4 MILLIGRAM/KILOGRAM, 1/WEEK
     Route: 042
     Dates: start: 20070319
  2. IDURSULFASE [Suspect]
     Active Substance: IDURSULFASE
     Indication: MUCOPOLYSACCHARIDOSIS II
     Dosage: 0.43 MILLIGRAM/KILOGRAM, 1/WEEK
     Route: 042
     Dates: start: 20060831
  3. IDURSULFASE [Suspect]
     Active Substance: IDURSULFASE
     Dosage: 0.42 MILLIGRAM/KILOGRAM, 1/WEEK
     Route: 042
     Dates: start: 20100305
  4. IDURSULFASE [Suspect]
     Active Substance: IDURSULFASE
     Dosage: 0.5 MILLIGRAM/KILOGRAM, 1/WEEK
     Route: 042
     Dates: start: 20101006

REACTIONS (3)
  - Bone cyst [Recovered/Resolved]
  - Tooth disorder [Recovered/Resolved]
  - Gingival bleeding [Recovered/Resolved]

NARRATIVE: CASE EVENT DATE: 20210716
